FAERS Safety Report 9115338 (Version 2)
Quarter: 2013Q1

REPORT INFORMATION
  Report Type: Spontaneous
  Country: US (occurrence: US)
  Receive Date: 20130225
  Receipt Date: 20130314
  Transmission Date: 20140127
  Serious: Yes (Hospitalization, Other)
  Sender: FDA-Public Use
  Company Number: US-PFIZER INC-2013063812

PATIENT
  Age: 15 Year
  Sex: Male
  Weight: 51.7 kg

DRUGS (2)
  1. XYNTHA [Suspect]
     Indication: FACTOR VIII DEFICIENCY
     Dosage: 50 IU/KG, WEEKLY
  2. XYNTHA [Suspect]
     Dosage: 80 IU/KG, PER INFUSION ON DEMAND

REACTIONS (3)
  - Disease complication [Unknown]
  - Haemorrhage [Unknown]
  - Joint injury [Unknown]
